FAERS Safety Report 9607029 (Version 1)
Quarter: 2013Q4

REPORT INFORMATION
  Report Type: Spontaneous
  Country: CA (occurrence: CA)
  Receive Date: 20131009
  Receipt Date: 20131009
  Transmission Date: 20140711
  Serious: Yes (Hospitalization)
  Sender: FDA-Public Use
  Company Number: CA-AMGEN-CANSP2013070238

PATIENT
  Age: 66 Year
  Sex: Female

DRUGS (2)
  1. FILGRASTIM [Suspect]
     Indication: PROPHYLAXIS
     Dosage: UNK
     Route: 065
  2. CHEMOTHERAPEUTICS [Concomitant]
     Indication: OESTROGEN RECEPTOR POSITIVE BREAST CANCER
     Dosage: UNK

REACTIONS (1)
  - Febrile neutropenia [Unknown]
